FAERS Safety Report 19739963 (Version 1)
Quarter: 2021Q3

REPORT INFORMATION
  Report Type: Spontaneous
  Country: US (occurrence: US)
  Receive Date: 20210823
  Receipt Date: 20210823
  Transmission Date: 20211014
  Serious: Yes (Hospitalization)
  Sender: FDA-Public Use
  Company Number: US-009507513-2108USA004547

PATIENT
  Age: 36 Year
  Sex: Female

DRUGS (1)
  1. ZERBAXA [Suspect]
     Active Substance: CEFTOLOZANE SULFATE\TAZOBACTAM SODIUM
     Indication: INFECTION
     Dosage: 3 GM EVERY 8 HOURS FOR 7 DAYS
     Route: 042
     Dates: start: 20210814

REACTIONS (2)
  - Adverse event [Not Recovered/Not Resolved]
  - Recalled product administered [Unknown]

NARRATIVE: CASE EVENT DATE: 202108
